FAERS Safety Report 12723799 (Version 3)
Quarter: 2016Q4

REPORT INFORMATION
  Report Type: Report from Study
  Country: None (occurrence: LB)
  Receive Date: 20160908
  Receipt Date: 20161202
  Transmission Date: 20170207
  Serious: Yes (Hospitalization)
  Sender: FDA-Public Use
  Company Number: LB-ABBVIE-16K-093-1720326-00

PATIENT
  Age: 21 Year
  Sex: Male
  Weight: 56 kg

DRUGS (5)
  1. HUMIRA [Suspect]
     Active Substance: ADALIMUMAB
     Dosage: TWO WEEKS AFTER SECOND LOADING DOSE
     Route: 058
     Dates: start: 20160107, end: 201603
  2. HUMIRA [Suspect]
     Active Substance: ADALIMUMAB
     Dosage: SECOND LOADING DOSE, TWO WEEKS AFTER FIRST LOADING DOSE
     Route: 058
     Dates: start: 20151224, end: 20151224
  3. HUMIRA [Suspect]
     Active Substance: ADALIMUMAB
     Indication: COLITIS ULCERATIVE
     Dosage: FIRST LOADING DOSE
     Route: 058
     Dates: start: 20151210, end: 20151210
  4. GASTRIMUT [Concomitant]
     Active Substance: OMEPRAZOLE
     Indication: PRODUCT USED FOR UNKNOWN INDICATION
     Route: 048
  5. HUMIRA [Suspect]
     Active Substance: ADALIMUMAB
     Route: 058
     Dates: start: 201603, end: 20160827

REACTIONS (4)
  - Ileostomy closure [Recovered/Resolved]
  - Ileostomy [Recovered/Resolved]
  - Large intestine anastomosis [Recovered/Resolved]
  - Colectomy total [Recovered/Resolved]

NARRATIVE: CASE EVENT DATE: 20160915
